FAERS Safety Report 14223672 (Version 2)
Quarter: 2018Q1

REPORT INFORMATION
  Report Type: Spontaneous
  Country: JP (occurrence: JP)
  Receive Date: 20171125
  Receipt Date: 20180131
  Transmission Date: 20180508
  Serious: Yes (Other)
  Sender: FDA-Public Use
  Company Number: JP-AMGEN-JPNSP2017176944

PATIENT
  Age: 5 Decade
  Sex: Female
  Weight: 49 kg

DRUGS (9)
  1. REGPARA [Suspect]
     Active Substance: CINACALCET HYDROCHLORIDE
     Dosage: 25 MG, UNK
     Route: 065
  2. REGPARA [Suspect]
     Active Substance: CINACALCET HYDROCHLORIDE
     Dosage: 50 MG, UNK
     Route: 065
  3. PRECIPITATED CALCIUM CARBONATE [Concomitant]
     Active Substance: CALCIUM CARBONATE
     Dosage: 1000 MG, UNK
     Route: 048
  4. REGPARA [Suspect]
     Active Substance: CINACALCET HYDROCHLORIDE
     Indication: BLOOD CALCIUM INCREASED
     Dosage: 25 MG, UNK
     Route: 065
  5. ALFACALCIDOL [Concomitant]
     Active Substance: ALFACALCIDOL
     Dosage: 0.5 MUG, UNK
     Route: 048
  6. PRECIPITATED CALCIUM CARBONATE [Concomitant]
     Active Substance: CALCIUM CARBONATE
     Dosage: 6000 MG, UNK
     Route: 048
  7. ALFACALCIDOL [Concomitant]
     Active Substance: ALFACALCIDOL
     Dosage: 4 MUG, UNK
     Route: 048
  8. ALFACALCIDOL [Concomitant]
     Active Substance: ALFACALCIDOL
     Dosage: 0.25 MUG, UNK
     Route: 048
  9. PRECIPITATED CALCIUM CARBONATE [Concomitant]
     Active Substance: CALCIUM CARBONATE
     Dosage: 3000 MG, UNK
     Route: 048

REACTIONS (5)
  - Parathyroid tumour malignant [Unknown]
  - Hypercalcaemia [Unknown]
  - Hyperphosphataemia [Unknown]
  - Angina unstable [Unknown]
  - Articular calcification [Unknown]
